FAERS Safety Report 16340551 (Version 3)
Quarter: 2020Q2

REPORT INFORMATION
  Report Type: Spontaneous
  Country: CA (occurrence: CA)
  Receive Date: 20190522
  Receipt Date: 20200518
  Transmission Date: 20200713
  Serious: Yes (Hospitalization, Other)
  Sender: FDA-Public Use
  Company Number: CA-AUROBINDO-AUR-APL-2019-028277

PATIENT
  Age: 59 Year
  Sex: Male

DRUGS (13)
  1. GABAPENTIN. [Suspect]
     Active Substance: GABAPENTIN
     Indication: PAIN
     Dosage: 600 MILLIGRAM, 3 TIMES A DAY
     Route: 065
  2. HYDROMORPHONE [Suspect]
     Active Substance: HYDROMORPHONE
     Indication: PAIN MANAGEMENT
     Dosage: 65 MILLIGRAM
     Route: 048
  3. NABILONE [Suspect]
     Active Substance: NABILONE
     Indication: MYALGIA
     Dosage: 1 MILLIGRAM, 3 TIMES A DAY
     Route: 065
  4. APO-IBUPROFEN [Suspect]
     Active Substance: IBUPROFEN
     Indication: NEUROPATHY PERIPHERAL
     Dosage: UNK
     Route: 065
  5. NABILONE [Suspect]
     Active Substance: NABILONE
     Dosage: 1 MILLIGRAM, TWO TIMES A DAY
     Route: 065
  6. APO HYDROMORPHONE [Suspect]
     Active Substance: HYDROMORPHONE HYDROCHLORIDE
     Indication: PAIN MANAGEMENT
     Dosage: 65 MILLIGRAM
     Route: 048
  7. APO-OXYCODONE/ACETAMINOPHEN [Suspect]
     Active Substance: ACETAMINOPHEN\OXYCODONE HYDROCHLORIDE
     Indication: PAIN
     Dosage: 120 MILLIGRAM, ONCE A DAY
     Route: 048
  8. FENTANYL. [Suspect]
     Active Substance: FENTANYL
     Indication: PAIN MANAGEMENT
     Dosage: UNK
     Route: 065
  9. APO-IBUPROFEN [Suspect]
     Active Substance: IBUPROFEN
     Indication: PAIN
     Dosage: UNK
     Route: 065
  10. APO-OXYCODONE/ACETAMINOPHEN [Suspect]
     Active Substance: ACETAMINOPHEN\OXYCODONE HYDROCHLORIDE
     Indication: NEUROPATHY PERIPHERAL
     Dosage: UNK
     Route: 065
  11. APO-OXYCODONE/ACETAMINOPHEN [Suspect]
     Active Substance: ACETAMINOPHEN\OXYCODONE HYDROCHLORIDE
     Indication: FIBROMYALGIA
  12. APO-IBUPROFEN [Suspect]
     Active Substance: IBUPROFEN
     Indication: FIBROMYALGIA
     Dosage: UNK
     Route: 065
  13. FENTANYL TRANSDERMAL SYSTEM [Suspect]
     Active Substance: FENTANYL
     Indication: PAIN MANAGEMENT
     Dosage: UNK
     Route: 065

REACTIONS (8)
  - Duodenal ulcer haemorrhage [Recovered/Resolved]
  - Product use in unapproved indication [Recovered/Resolved]
  - Drug use disorder [Recovered/Resolved]
  - Haematemesis [Recovered/Resolved]
  - Withdrawal syndrome [Recovered/Resolved]
  - Drug ineffective [Recovered/Resolved]
  - Therapeutic product effect incomplete [Recovered/Resolved]
  - Hyperaesthesia [Recovered/Resolved]
